FAERS Safety Report 17231541 (Version 1)
Quarter: 2020Q1

REPORT INFORMATION
  Report Type: Spontaneous
  Country: US (occurrence: US)
  Receive Date: 20200103
  Receipt Date: 20200103
  Transmission Date: 20200409
  Serious: No
  Sender: FDA-Public Use
  Company Number: US-PFIZER INC-2019561888

PATIENT
  Sex: Male

DRUGS (1)
  1. VIAGRA [Suspect]
     Active Substance: SILDENAFIL CITRATE
     Indication: ERECTILE DYSFUNCTION
     Dosage: 100 MG, (TOOK ONE 50 MG TAB AND IT DIDN^T WORK SO 2 HOURS LATER TOOK ANOTHER)

REACTIONS (2)
  - Penile burning sensation [Unknown]
  - Drug ineffective [Unknown]
